FAERS Safety Report 6089072-9 (Version None)
Quarter: 2009Q1

REPORT INFORMATION
  Report Type: 
  Country: None (occurrence: None)
  Receive Date: 20090224
  Receipt Date: 20090219
  Transmission Date: 20090719
  Serious: Yes (Hospitalization, Other)
  Sender: FDA-Public Use
  Company Number: B0561364A

PATIENT
  Age: 75 Year
  Sex: Male

DRUGS (1)
  1. WELLBUTRIN XR [Suspect]
     Indication: DEPRESSION
     Route: 048

REACTIONS (3)
  - ATRIAL FIBRILLATION [None]
  - ATRIOVENTRICULAR BLOCK [None]
  - CARDIAC PACEMAKER INSERTION [None]
